FAERS Safety Report 9381592 (Version 2)
Quarter: 2013Q3

REPORT INFORMATION
  Report Type: Report from Study
  Country: US (occurrence: US)
  Receive Date: 20130703
  Receipt Date: 20130725
  Transmission Date: 20140515
  Serious: Yes (Other)
  Sender: FDA-Public Use
  Company Number: US-JNJFOC-20130618790

PATIENT
  Sex: Female

DRUGS (8)
  1. ULTRAM ER [Suspect]
     Indication: PAIN
     Dosage: 1 PER DAY
     Route: 065
  2. ULTRAM ER [Suspect]
     Indication: PAIN
     Route: 065
  3. TRAMADOL [Suspect]
     Indication: PAIN
     Route: 048
  4. TRAMADOL [Suspect]
     Indication: PAIN
     Dosage: AT NIGHT TIME
     Route: 048
     Dates: start: 201010, end: 201011
  5. NORVASC [Concomitant]
     Indication: HYPERTENSION
     Dosage: SINCE 1998
     Route: 065
  6. TENORMIN [Concomitant]
     Indication: HYPERTENSION
     Dosage: SINCE 1998
     Route: 065
  7. ZOCOR [Concomitant]
     Indication: CORONARY ARTERY DISEASE
     Dosage: SINCE 1998
     Route: 065
     Dates: start: 200107
  8. DARVOCET [Concomitant]
     Indication: PAIN
     Dosage: SINCE 1998
     Route: 065
     Dates: start: 200208

REACTIONS (2)
  - Hallucination, visual [Recovered/Resolved]
  - Headache [Unknown]
